FAERS Safety Report 5829431-X (Version None)
Quarter: 2008Q3

REPORT INFORMATION
  Report Type: 
  Country: None (occurrence: None)
  Receive Date: 20080729
  Receipt Date: 20080714
  Transmission Date: 20090109
  Serious: Yes (Hospitalization)
  Sender: FDA-Public Use
  Company Number: 2008001110

PATIENT
  Sex: Female

DRUGS (10)
  1. ERLOTINIB           (ERLOTINIB HCL) [Suspect]
     Indication: NON-SMALL CELL LUNG CANCER
     Dosage: 150 MG, QD; ORAL
     Route: 048
     Dates: start: 20080201
  2. ALBUTEROL SULFATE [Concomitant]
  3. ALPRAZOLAM [Concomitant]
  4. COMPAZINE [Concomitant]
  5. DUONEB [Concomitant]
  6. HYDROCODONE (HYDROCODONE) [Concomitant]
  7. PHENERGAN HCL [Concomitant]
  8. SIMETHICONE (DOMETICONE, ACTIVATED) [Concomitant]
  9. WELLBUTRIN 9AMFEBUTAMONE HYDROCHLORIDE) [Concomitant]
  10. ATROVENT [Concomitant]

REACTIONS (5)
  - DYSPNOEA [None]
  - HAEMATOCRIT DECREASED [None]
  - HAEMOGLOBIN DECREASED [None]
  - PLEURITIC PAIN [None]
  - PRODUCTIVE COUGH [None]
